FAERS Safety Report 18638501 (Version 1)
Quarter: 2020Q4

REPORT INFORMATION
  Report Type: Spontaneous
  Country: PL (occurrence: PL)
  Receive Date: 20201218
  Receipt Date: 20201218
  Transmission Date: 20210114
  Serious: Yes (Other)
  Sender: FDA-Public Use
  Company Number: PL-INCYTE CORPORATION-2020IN012601

PATIENT

DRUGS (4)
  1. MOMELOTINIB [Suspect]
     Active Substance: MOMELOTINIB
     Indication: PRIMARY MYELOFIBROSIS
     Dosage: 200 MG
     Route: 065
     Dates: end: 20170529
  2. JAKAVI [Suspect]
     Active Substance: RUXOLITINIB
     Dosage: 5 MG, BID  (2X5 MG/DAILY)
     Route: 065
     Dates: start: 201907
  3. JAKAVI [Suspect]
     Active Substance: RUXOLITINIB
     Dosage: 10 MG, BID (2X10 MG/DAILY)
     Route: 065
  4. JAKAVI [Suspect]
     Active Substance: RUXOLITINIB
     Indication: PRIMARY MYELOFIBROSIS
     Dosage: 15 MG, BID (2X15 MG/DAILY)
     Route: 065
     Dates: start: 201705

REACTIONS (13)
  - Red cell distribution width increased [Unknown]
  - Asthenia [Unknown]
  - Colon cancer [Unknown]
  - Red blood cell count decreased [Unknown]
  - Second primary malignancy [Unknown]
  - Haemoglobin decreased [Unknown]
  - Immunoglobulins increased [Unknown]
  - Monocyte count increased [Unknown]
  - Neutrophil count decreased [Unknown]
  - Transaminases increased [Unknown]
  - Splenomegaly [Unknown]
  - Fatigue [Unknown]
  - White blood cell count increased [Unknown]
